FAERS Safety Report 11828170 (Version 1)
Quarter: 2015Q4

REPORT INFORMATION
  Report Type: Spontaneous
  Country: FR (occurrence: FR)
  Receive Date: 20151211
  Receipt Date: 20151211
  Transmission Date: 20160305
  Serious: Yes (Life-Threatening, Hospitalization, Other)
  Sender: FDA-Public Use
  Company Number: FR-TEVA-615912ISR

PATIENT
  Age: 30 Year
  Sex: Female
  Weight: 102 kg

DRUGS (1)
  1. LEELOO 0.1 MG/ 0.02 MG [Suspect]
     Active Substance: ETHINYL ESTRADIOL\LEVONORGESTREL
     Dosage: 1 DOSAGE FORMS DAILY;
     Route: 048
     Dates: start: 20150803, end: 20150808

REACTIONS (2)
  - Cardiogenic shock [Recovering/Resolving]
  - Pulmonary embolism [Recovering/Resolving]

NARRATIVE: CASE EVENT DATE: 20150809
